FAERS Safety Report 5779626-9 (Version None)
Quarter: 2008Q2

REPORT INFORMATION
  Report Type: 
  Country: None (occurrence: None)
  Receive Date: 20080601
  Receipt Date: 20080324
  Transmission Date: 20081010
  Serious: No
  Sender: FDA-Public Use
  Company Number: US200803005674

PATIENT
  Sex: Female

DRUGS (4)
  1. BYETTA [Suspect]
     Indication: GLUCOSE TOLERANCE IMPAIRED
     Dosage: 5 UG, 2/D, SUBCUTANEOUS
     Route: 058
     Dates: start: 20080324
  2. EXENATIDE 5MCG PEN, DISPOSABLE DEVICE, (EXENATIDE PEN (5MCG)) PEN, DIS [Concomitant]
  3. METFORMIN HCL [Concomitant]
  4. ANTIHYPERTENSIVES [Concomitant]

REACTIONS (2)
  - NAUSEA [None]
  - TENSION [None]
